FAERS Safety Report 6930248-3 (Version None)
Quarter: 2010Q3

REPORT INFORMATION
  Report Type: 
  Country: None (occurrence: None)
  Receive Date: 20100818
  Receipt Date: 20100804
  Transmission Date: 20110219
  Serious: Yes (Life-Threatening, Hospitalization, Other)
  Sender: FDA-Public Use
  Company Number: CH-ABBOTT-10P-151-0638782-00

PATIENT
  Age: 64 Year
  Sex: Female
  Weight: 50 kg

DRUGS (2)
  1. HUMIRA [Suspect]
     Indication: RHEUMATOID ARTHRITIS
     Dates: start: 20040615, end: 20091201
  2. HUMIRA [Suspect]
     Dates: end: 20091230

REACTIONS (18)
  - BRONCHITIS [None]
  - COMA [None]
  - COUGH [None]
  - DEPRESSED LEVEL OF CONSCIOUSNESS [None]
  - DIARRHOEA [None]
  - GENERAL PHYSICAL HEALTH DETERIORATION [None]
  - HEADACHE [None]
  - HEPATIC ENZYME INCREASED [None]
  - HYPOACUSIS [None]
  - HYPOKALAEMIA [None]
  - INFLAMMATION [None]
  - MENINGITIS PNEUMOCOCCAL [None]
  - NAUSEA [None]
  - OSTEOPOROSIS [None]
  - OTITIS MEDIA [None]
  - PLEURAL EFFUSION [None]
  - RESPIRATORY TRACT INFECTION [None]
  - VOMITING [None]
